FAERS Safety Report 11544492 (Version 1)
Quarter: 2015Q3

REPORT INFORMATION
  Report Type: Spontaneous
  Country: US (occurrence: US)
  Receive Date: 20150924
  Receipt Date: 20150924
  Transmission Date: 20151125
  Serious: Yes (Death)
  Sender: FDA-Public Use
  Company Number: US-SUN PHARMACEUTICAL INDUSTRIES LTD-13SUNAN08P

PATIENT
  Age: 73 Year
  Sex: Female

DRUGS (2)
  1. ANASTRAZOLE TABLETS 1MG [Suspect]
     Active Substance: ANASTROZOLE
     Indication: BREAST CANCER METASTATIC
     Dosage: 1 MG, QD
     Route: 048
  2. FULVESTRANT [Suspect]
     Active Substance: FULVESTRANT
     Indication: BREAST CANCER METASTATIC
     Dosage: DOSE OF 500 MG ON DAY 1 AND 250 MG ON DAYS 14 AND 28 AND MONTHLY THEREAFTER
     Route: 030

REACTIONS (1)
  - Embolism [Fatal]
